FAERS Safety Report 6853037-7 (Version None)
Quarter: 2010Q3

REPORT INFORMATION
  Report Type: 
  Country: None (occurrence: None)
  Receive Date: 20100717
  Receipt Date: 20071229
  Transmission Date: 20110219
  Serious: No
  Sender: FDA-Public Use
  Company Number: US-PFIZER INC-2007099684

PATIENT
  Sex: Female
  Weight: 55.3 kg

DRUGS (3)
  1. CHANTIX [Suspect]
     Indication: SMOKING CESSATION THERAPY
     Dates: start: 20070101, end: 20070101
  2. LEXAPRO [Concomitant]
  3. XANAX [Concomitant]
     Indication: SLEEP DISORDER

REACTIONS (1)
  - HEADACHE [None]
